FAERS Safety Report 7356363-0 (Version None)
Quarter: 2011Q1

REPORT INFORMATION
  Report Type: 
  Country: None (occurrence: None)
  Receive Date: 20110316
  Receipt Date: 20110309
  Transmission Date: 20110831
  Serious: Yes (Other)
  Sender: FDA-Public Use
  Company Number: JP-PFIZER INC-2011051279

PATIENT
  Age: 77 Year
  Sex: Female

DRUGS (8)
  1. VANCOMYCIN HCL [Suspect]
     Dosage: 500 MG/DAY FOR 21 DAYS
     Route: 048
  2. VANCOMYCIN HCL [Suspect]
     Dosage: 500 MG/DAY FOR 28 DAYS
     Route: 048
  3. CEFAZOLIN [Suspect]
     Dosage: 4 G, A DAY
  4. CLINDAMYCIN PHOSPHATE [Suspect]
     Dosage: 2400 MG/DAY
  5. METRONIDAZOLE [Suspect]
     Dosage: 1500 MG/DAY
     Route: 048
  6. VANCOMYCIN HCL [Suspect]
     Dosage: 125 MG/DAY
     Route: 048
  7. VANCOMYCIN HCL [Suspect]
     Dosage: 500 MG/DAY FOR 14 DAYS
     Route: 048
  8. VANCOMYCIN HCL [Suspect]
     Dosage: 500 MG/DAY FOR A MONTH
     Route: 048

REACTIONS (2)
  - PSEUDOMEMBRANOUS COLITIS [None]
  - DISEASE RECURRENCE [None]
